FAERS Safety Report 16074642 (Version 3)
Quarter: 2019Q2

REPORT INFORMATION
  Report Type: Report from Study
  Country: US (occurrence: US)
  Receive Date: 20190314
  Receipt Date: 20190526
  Transmission Date: 20190711
  Serious: Yes (Other)
  Sender: FDA-Public Use
  Company Number: PHEH2019US010472

PATIENT
  Age: 50 Year
  Sex: Female
  Weight: 73.4 kg

DRUGS (1)
  1. GILENYA [Suspect]
     Active Substance: FINGOLIMOD HYDROCHLORIDE
     Indication: RELAPSING MULTIPLE SCLEROSIS
     Dosage: 0.5 MG, QD
     Route: 048
     Dates: start: 20190128

REACTIONS (10)
  - Optic neuritis [Unknown]
  - Stress [Unknown]
  - Headache [Recovered/Resolved]
  - Dry eye [Recovering/Resolving]
  - Vision blurred [Recovered/Resolved]
  - Disturbance in attention [Unknown]
  - Photophobia [Unknown]
  - Asthenia [Unknown]
  - Hypertension [Unknown]
  - Visual impairment [Not Recovered/Not Resolved]

NARRATIVE: CASE EVENT DATE: 20190211
